FAERS Safety Report 8036482-6 (Version None)
Quarter: 2012Q1

REPORT INFORMATION
  Report Type: 
  Country: None (occurrence: None)
  Receive Date: 20120109
  Receipt Date: 20111229
  Transmission Date: 20120608
  Serious: Yes (Other)
  Sender: FDA-Public Use
  Company Number: DSA_48704_2012

PATIENT
  Age: 65 Year
  Sex: Male

DRUGS (1)
  1. ENALAPRIL MALEATE [Suspect]
     Indication: CARDIAC FAILURE
     Dosage: (10 MG, ORAL)
     Route: 048

REACTIONS (4)
  - ANGIOEDEMA [None]
  - SWOLLEN TONGUE [None]
  - OEDEMA MOUTH [None]
  - DYSARTHRIA [None]
